FAERS Safety Report 15976576 (Version 1)
Quarter: 2019Q1

REPORT INFORMATION
  Report Type: Spontaneous
  Country: GB (occurrence: GB)
  Receive Date: 20190218
  Receipt Date: 20190218
  Transmission Date: 20190418
  Serious: Yes (Other)
  Sender: FDA-Public Use
  Company Number: GB-MYLANLABS-2019M1013522

PATIENT
  Age: 53 Year
  Sex: Female

DRUGS (4)
  1. DESFLURANE. [Suspect]
     Active Substance: DESFLURANE
     Indication: ANAESTHESIA
     Dosage: UNK
     Route: 065
  2. FENTANYL. [Suspect]
     Active Substance: FENTANYL
     Indication: ANAESTHESIA
     Dosage: UNK
     Route: 065
  3. ATRACURIUM BESILATE [Suspect]
     Active Substance: ATRACURIUM BESYLATE
     Indication: ANAESTHESIA
     Dosage: UNK
     Route: 065
  4. PROPOFOL. [Suspect]
     Active Substance: PROPOFOL
     Indication: ANAESTHESIA
     Dosage: UNK
     Route: 065

REACTIONS (7)
  - Muscle twitching [Unknown]
  - Coma scale abnormal [Unknown]
  - HIV-associated neurocognitive disorder [Unknown]
  - Seizure [Unknown]
  - Gaze palsy [Unknown]
  - Hepatitis B [Unknown]
  - Urinary incontinence [Unknown]
